FAERS Safety Report 5278375-3 (Version None)
Quarter: 2007Q1

REPORT INFORMATION
  Report Type: 
  Country: None (occurrence: None)
  Receive Date: 20061213
  Receipt Date: 20050707
  Transmission Date: 20070707
  Serious: Yes (Hospitalization)
  Sender: FDA-Public Use
  Company Number: 2005UW10277

PATIENT
  Sex: Female

DRUGS (2)
  1. SEROQUEL [Suspect]
     Dosage: 800 MG PO
     Route: 048
  2. SEROQUEL [Suspect]
     Dosage: 2800 MG ONCE PO
     Route: 048

REACTIONS (1)
  - OVERDOSE [None]
